FAERS Safety Report 14538620 (Version 3)
Quarter: 2018Q1

REPORT INFORMATION
  Report Type: Spontaneous
  Country: US (occurrence: US)
  Receive Date: 20180216
  Receipt Date: 20180220
  Transmission Date: 20180509
  Serious: Yes (Other)
  Sender: FDA-Public Use
  Company Number: US-TEVA-2018-US-859018

PATIENT
  Age: 58 Year
  Sex: Female

DRUGS (2)
  1. SEROQUEL [Concomitant]
     Active Substance: QUETIAPINE FUMARATE
     Indication: BIPOLAR DISORDER
  2. GRANIX [Suspect]
     Active Substance: TBO-FILGRASTIM
     Indication: BLOOD COUNT ABNORMAL
     Dosage: FORM STRENGTH: 480 MCG / 0.8 ML
     Dates: start: 20171218, end: 20171219

REACTIONS (6)
  - Pain in extremity [Unknown]
  - Breast pain [Unknown]
  - Hepatitis C [Unknown]
  - Drug ineffective [Unknown]
  - Visual impairment [Unknown]
  - Hepatitis B [Unknown]

NARRATIVE: CASE EVENT DATE: 20171218
